FAERS Safety Report 6562260-0 (Version None)
Quarter: 2010Q1

REPORT INFORMATION
  Report Type: 
  Country: None (occurrence: None)
  Receive Date: 20100130
  Receipt Date: 20091102
  Transmission Date: 20100710
  Serious: No
  Sender: FDA-Public Use
  Company Number: US-ABBOTT-09P-163-0606966-00

PATIENT
  Sex: Female
  Weight: 43.584 kg

DRUGS (6)
  1. HUMIRA [Suspect]
     Indication: ANKYLOSING SPONDYLITIS
     Dates: start: 20080101
  2. HUMIRA [Suspect]
     Indication: COLITIS ULCERATIVE
  3. METHOTREXATE [Concomitant]
     Indication: ANKYLOSING SPONDYLITIS
     Route: 048
  4. METHOTREXATE [Concomitant]
     Indication: COLITIS ULCERATIVE
  5. TOPAMAX [Concomitant]
     Indication: HEADACHE
     Route: 048
  6. COUMADIN [Concomitant]
     Indication: DRUG USE FOR UNKNOWN INDICATION

REACTIONS (12)
  - BLOOD CREATININE ABNORMAL [None]
  - BLOOD POTASSIUM INCREASED [None]
  - BLOOD UREA ABNORMAL [None]
  - ESSENTIAL TREMOR [None]
  - FATIGUE [None]
  - HAEMATOCRIT DECREASED [None]
  - HAEMOGLOBIN DECREASED [None]
  - JOINT SWELLING [None]
  - NARCOLEPSY [None]
  - PAIN [None]
  - ROAD TRAFFIC ACCIDENT [None]
  - WEIGHT DECREASED [None]
